FAERS Safety Report 8312630-5 (Version None)
Quarter: 2012Q2

REPORT INFORMATION
  Report Type: 
  Country: None (occurrence: None)
  Receive Date: 20120424
  Receipt Date: 20120417
  Transmission Date: 20120825
  Serious: Yes (Disabling, Other)
  Sender: FDA-Public Use
  Company Number: ACO_30088_2012

PATIENT
  Age: 52 Year
  Sex: Female

DRUGS (1)
  1. AMPYRA [Suspect]
     Indication: PRODUCT USED FOR UNKNOWN INDICATION
     Dosage: 10 MG, BID, ORAL
     Route: 048
     Dates: start: 20100729

REACTIONS (6)
  - PARAESTHESIA [None]
  - CAROTID ARTERY DISEASE [None]
  - DIZZINESS [None]
  - HYPOAESTHESIA [None]
  - DYSSTASIA [None]
  - BALANCE DISORDER [None]
